FAERS Safety Report 8171856-4 (Version None)
Quarter: 2012Q1

REPORT INFORMATION
  Report Type: 
  Country: None (occurrence: None)
  Receive Date: 20120228
  Receipt Date: 20120223
  Transmission Date: 20120608
  Serious: No
  Sender: FDA-Public Use
  Company Number: US-BAYER-2012-019324

PATIENT
  Sex: Male

DRUGS (2)
  1. BETASERON [Suspect]
     Indication: MULTIPLE SCLEROSIS
     Dosage: 0.3 MG, UNK
     Route: 058
     Dates: start: 20111101
  2. IBUPROFEN (ADVIL) [Concomitant]

REACTIONS (1)
  - INFLUENZA LIKE ILLNESS [None]
